FAERS Safety Report 24077560 (Version 2)
Quarter: 2025Q3

REPORT INFORMATION
  Report Type: Spontaneous
  Country: US (occurrence: US)
  Receive Date: 20240711
  Receipt Date: 20250731
  Transmission Date: 20251020
  Serious: No
  Sender: RECORDATI
  Company Number: US-RECORDATI RARE DISEASE INC.-2024003877

PATIENT

DRUGS (3)
  1. PANHEMATIN [Suspect]
     Active Substance: HEMIN
     Indication: Porphyria acute
  2. PANHEMATIN [Suspect]
     Active Substance: HEMIN
  3. PANHEMATIN [Suspect]
     Active Substance: HEMIN
     Dates: start: 20240731

REACTIONS (2)
  - Nausea [Unknown]
  - Nausea [Unknown]

NARRATIVE: CASE EVENT DATE: 20240803
